FAERS Safety Report 9105064 (Version 4)
Quarter: 2020Q2

REPORT INFORMATION
  Report Type: Spontaneous
  Country: FR (occurrence: FR)
  Receive Date: 20130219
  Receipt Date: 20200617
  Transmission Date: 20200714
  Serious: Yes (Death, Other)
  Sender: FDA-Public Use
  Company Number: FR-009507513-1302FRA004956

PATIENT
  Age: 70 Year
  Sex: Male

DRUGS (3)
  1. GENTAMICIN. [Suspect]
     Active Substance: GENTAMICIN
     Indication: STAPHYLOCOCCAL BACTERAEMIA
     Dosage: UNK
     Route: 042
     Dates: start: 20121231, end: 20130102
  2. TIENAM 500MG/500MG, POUDRE POUR PERFUSION [Suspect]
     Active Substance: CILASTATIN SODIUM\IMIPENEM
     Indication: LUNG DISORDER
     Dosage: UNK
     Route: 042
     Dates: start: 20130106, end: 20130109
  3. VANCOMYCIN MYLAN [Suspect]
     Active Substance: VANCOMYCIN
     Indication: STAPHYLOCOCCAL BACTERAEMIA
     Dosage: 750 MG, QD
     Route: 042
     Dates: start: 20121231, end: 20130110

REACTIONS (3)
  - Erythema [Fatal]
  - Dermatitis bullous [Fatal]
  - Linear IgA disease [Fatal]

NARRATIVE: CASE EVENT DATE: 20130107
